FAERS Safety Report 9944840 (Version 1)
Quarter: 2014Q1

REPORT INFORMATION
  Report Type: Report from Study
  Country: US (occurrence: US)
  Receive Date: 20140303
  Receipt Date: 20140303
  Transmission Date: 20141002
  Serious: No
  Sender: FDA-Public Use
  Company Number: US-ABBVIE-13P-163-1050337-00

PATIENT
  Age: 68 Year
  Sex: Female

DRUGS (9)
  1. HUMIRA [Suspect]
     Indication: RHEUMATOID ARTHRITIS
     Dates: start: 20130130
  2. CELEBREX [Concomitant]
     Indication: PRODUCT USED FOR UNKNOWN INDICATION
  3. PLAQUENIL [Concomitant]
     Indication: PRODUCT USED FOR UNKNOWN INDICATION
  4. LEFLUNOMIDE [Concomitant]
     Indication: PRODUCT USED FOR UNKNOWN INDICATION
  5. RESTASIS [Concomitant]
     Indication: PRODUCT USED FOR UNKNOWN INDICATION
  6. FORTEO [Concomitant]
     Indication: PRODUCT USED FOR UNKNOWN INDICATION
     Dosage: NIGHTLY
     Route: 050
  7. MULTIVITAMIN [Concomitant]
     Indication: PRODUCT USED FOR UNKNOWN INDICATION
     Dosage: DAILY
  8. SELENIUM [Concomitant]
     Indication: PRODUCT USED FOR UNKNOWN INDICATION
     Dosage: DAILY
  9. VITAMIN K [Concomitant]
     Indication: PRODUCT USED FOR UNKNOWN INDICATION
     Dosage: DAILY

REACTIONS (2)
  - Arthralgia [Not Recovered/Not Resolved]
  - Injection site haemorrhage [Not Recovered/Not Resolved]
